FAERS Safety Report 7831028-7 (Version None)
Quarter: 2011Q4

REPORT INFORMATION
  Report Type: 
  Country: None (occurrence: None)
  Receive Date: 20111021
  Receipt Date: 20111010
  Transmission Date: 20120403
  Serious: Yes (Other)
  Sender: FDA-Public Use
  Company Number: PHHY2011US90854

PATIENT
  Age: 49 Year
  Sex: Male

DRUGS (7)
  1. CYCLOSPORINE [Suspect]
     Indication: PEMPHIGUS
  2. PREDNISONE [Concomitant]
     Dosage: 20 MG
  3. GOLD [Concomitant]
  4. PREDNISONE [Concomitant]
     Dosage: 100 MG, UNK
  5. PREDNISONE [Concomitant]
     Dosage: 30 MG
  6. AZATHIOPRINE [Concomitant]
  7. MYCOPHENOLATE MOFETIL [Concomitant]
     Dosage: 3 G

REACTIONS (7)
  - SKIN EROSION [None]
  - DRUG INEFFECTIVE [None]
  - GINGIVAL EROSION [None]
  - INJECTION SITE REACTION [None]
  - CONDITION AGGRAVATED [None]
  - ORAL MUCOSA EROSION [None]
  - SCAB [None]
